FAERS Safety Report 9301763 (Version 1)
Quarter: 2013Q2

REPORT INFORMATION
  Report Type: Spontaneous
  Country: US (occurrence: US)
  Receive Date: 20130521
  Receipt Date: 20130521
  Transmission Date: 20140414
  Serious: Yes (Other)
  Sender: FDA-Public Use
  Company Number: US-ALEXION-A201300747

PATIENT
  Age: 44 Year
  Sex: Female
  Weight: 70 kg

DRUGS (8)
  1. SOLIRIS 300MG [Suspect]
     Indication: HAEMOLYTIC URAEMIC SYNDROME
     Dosage: 900 MG, Q2W
     Route: 042
     Dates: start: 20121023, end: 20121109
  2. SOLIRIS 300MG [Suspect]
     Dosage: 900 MG, Q2W
     Route: 042
     Dates: start: 20121128, end: 20121211
  3. SOLIRIS 300MG [Suspect]
     Dosage: 1200 MG, Q2W
     Route: 042
     Dates: start: 20121227, end: 20130311
  4. SOLIRIS 300MG [Suspect]
     Dosage: 1200 MG, Q2W
     Route: 042
     Dates: start: 20130404
  5. LISINOPRIL [Concomitant]
     Dosage: 20 MG, QD
     Dates: end: 20130329
  6. LASIX [Concomitant]
     Dosage: 40 MG, QD
  7. NORCO [Concomitant]
     Dosage: 10/325 MG, PRN
  8. COREG [Concomitant]
     Dosage: 6.25 MG, BID

REACTIONS (1)
  - Blood pressure increased [Unknown]
